FAERS Safety Report 5399753-8 (Version None)
Quarter: 2007Q3

REPORT INFORMATION
  Report Type: 
  Country: None (occurrence: None)
  Receive Date: 20070727
  Receipt Date: 20070717
  Transmission Date: 20080115
  Serious: Yes (Other)
  Sender: FDA-Public Use
  Company Number: CA-PFIZER INC-2007060427

PATIENT
  Sex: Female

DRUGS (12)
  1. NEURONTIN [Suspect]
     Indication: DIABETIC NEUROPATHY
     Route: 048
  2. GABAPENTIN [Suspect]
     Indication: DIABETIC NEUROPATHY
     Route: 048
  3. LYRICA [Concomitant]
     Route: 048
  4. CELEXA [Concomitant]
     Route: 048
  5. HYDROCHLOROTHIAZIDE [Concomitant]
     Route: 048
  6. PREVACID [Concomitant]
     Route: 048
  7. NORTRIPTYLINE HCL [Concomitant]
     Route: 048
  8. SYNTHROID [Concomitant]
     Route: 048
  9. METHADONE HCL [Concomitant]
  10. ASPIRIN [Concomitant]
     Route: 048
  11. LIPITOR [Concomitant]
     Route: 048
  12. BISOPROLOL FUMARATE [Concomitant]
     Route: 048

REACTIONS (6)
  - DYSARTHRIA [None]
  - DYSPHEMIA [None]
  - GASTROINTESTINAL DISORDER [None]
  - MYOCARDIAL INFARCTION [None]
  - THINKING ABNORMAL [None]
  - TREMOR [None]
